FAERS Safety Report 12929232 (Version 2)
Quarter: 2017Q4

REPORT INFORMATION
  Report Type: Spontaneous
  Country: US (occurrence: US)
  Receive Date: 20161110
  Receipt Date: 20171004
  Transmission Date: 20180320
  Serious: No
  Sender: FDA-Public Use
  Company Number: US-PFIZER INC-2016519119

PATIENT
  Age: 57 Year
  Sex: Female

DRUGS (1)
  1. TALWIN [Suspect]
     Active Substance: PENTAZOCINE LACTATE
     Dosage: UNK

REACTIONS (3)
  - Rash [Unknown]
  - Drug hypersensitivity [Unknown]
  - Pruritus [Unknown]
